FAERS Safety Report 9479403 (Version 2)
Quarter: 2013Q4

REPORT INFORMATION
  Report Type: Spontaneous
  Country: US (occurrence: US)
  Receive Date: 20130827
  Receipt Date: 20131104
  Transmission Date: 20140711
  Serious: No
  Sender: FDA-Public Use
  Company Number: US-PFIZER INC-2013244753

PATIENT
  Age: 92 Year
  Sex: Male
  Weight: 74.83 kg

DRUGS (2)
  1. DILANTIN-125 [Suspect]
     Dosage: 125/5 MG/ML, 3X/DAY
     Route: 048
     Dates: start: 20130801
  2. KEPPRA [Concomitant]
     Indication: CONVULSION
     Dosage: UNK

REACTIONS (3)
  - Swelling face [Unknown]
  - Abdominal distension [Unknown]
  - Hypersensitivity [Unknown]
